FAERS Safety Report 5675942-X (Version None)
Quarter: 2008Q2

REPORT INFORMATION
  Report Type: 
  Country: None (occurrence: None)
  Receive Date: 20080228
  Receipt Date: 20071123
  Transmission Date: 20081010
  Serious: Yes (Hospitalization)
  Sender: FDA-Public Use
  Company Number: 2007BH008029

PATIENT
  Age: 43 Year
  Sex: Female
  Weight: 82 kg

DRUGS (10)
  1. GAMMAGARD LIQUID [Suspect]
     Indication: OFF LABEL USE
     Dosage: 140 GM;EVERY 4 WK;IV
     Route: 042
     Dates: start: 20070219, end: 20070419
  2. GAMMAGARD LIQUID [Suspect]
     Indication: POLYMYOSITIS
     Dosage: 140 GM;EVERY 4 WK;IV
     Route: 042
     Dates: start: 20070219, end: 20070419
  3. GAMMAGARD LIQUID [Suspect]
  4. GAMMAGARD LIQUID [Suspect]
  5. GAMMAGARD LIQUID [Suspect]
  6. GAMMAGARD LIQUID [Suspect]
  7. GAMMAGARD LIQUID [Suspect]
  8. GAMMAGARD LIQUID [Suspect]
  9. BENADRYL [Concomitant]
  10. TYLENOL [Concomitant]

REACTIONS (1)
  - MENINGITIS ASEPTIC [None]
